FAERS Safety Report 13610067 (Version 1)
Quarter: 2017Q2

REPORT INFORMATION
  Report Type: Other
  Country: GB (occurrence: ES)
  Receive Date: 20170603
  Receipt Date: 20170603
  Transmission Date: 20170830
  Serious: Yes (Hospitalization, Other)
  Sender: FDA-Public Use
  Company Number: ES-INTERNATIONAL MEDICATION SYSTEMS, LIMITED-2021530

PATIENT
  Age: 52 Year
  Sex: Female

DRUGS (1)
  1. ATROPINE. [Suspect]
     Active Substance: ATROPINE
     Indication: CATARACT
     Route: 061

REACTIONS (1)
  - Tachycardia [Recovered/Resolved]
